FAERS Safety Report 15090144 (Version 1)
Quarter: 2018Q2

REPORT INFORMATION
  Report Type: Spontaneous
  Country: TW (occurrence: TW)
  Receive Date: 20180629
  Receipt Date: 20180629
  Transmission Date: 20180711
  Serious: Yes (Other)
  Sender: FDA-Public Use
  Company Number: TW-BAYER-2018-120639

PATIENT
  Age: 64 Year
  Sex: Male

DRUGS (5)
  1. NEXAVAR [Suspect]
     Active Substance: SORAFENIB
     Indication: HEPATOCELLULAR CARCINOMA
     Dosage: 400 MG, BID
     Route: 048
     Dates: start: 2010
  2. INLYTA [Concomitant]
     Active Substance: AXITINIB
     Dosage: 3 MG, BID
     Dates: start: 20160321
  3. INLYTA [Concomitant]
     Active Substance: AXITINIB
     Dosage: 2 MG, BID
     Dates: start: 20160308, end: 20160320
  4. CELLCEPT [Concomitant]
     Active Substance: MYCOPHENOLATE MOFETIL\MYCOPHENOLATE MOFETIL HYDROCHLORIDE
     Dosage: 500 MG, QD
  5. PREDNISOLONE. [Concomitant]
     Active Substance: PREDNISOLONE
     Dosage: 0.5 MG, QD

REACTIONS (9)
  - Papillary renal cell carcinoma [None]
  - Asthenia [None]
  - Hepatocellular carcinoma [None]
  - Metastases to central nervous system [None]
  - Metastases to lung [None]
  - Hemiplegia [None]
  - Tumour haemorrhage [None]
  - Palmar-plantar erythrodysaesthesia syndrome [None]
  - Bladder cancer [None]

NARRATIVE: CASE EVENT DATE: 2014
